FAERS Safety Report 9629432 (Version 1)
Quarter: 2013Q4

REPORT INFORMATION
  Report Type: Spontaneous
  Country: US (occurrence: US)
  Receive Date: 20131017
  Receipt Date: 20131017
  Transmission Date: 20140711
  Serious: No
  Sender: FDA-Public Use
  Company Number: US-ASTRAZENECA-2013SE47762

PATIENT
  Age: 62 Year
  Sex: Female

DRUGS (3)
  1. CRESTOR [Suspect]
     Route: 048
  2. LIPITOR [Suspect]
     Route: 065
  3. LOVASTATIN [Suspect]
     Route: 065

REACTIONS (5)
  - Pyrexia [Unknown]
  - Blood cholesterol abnormal [Unknown]
  - Myalgia [Unknown]
  - Muscular weakness [Unknown]
  - Nausea [Unknown]
